FAERS Safety Report 6655983-6 (Version None)
Quarter: 2010Q1

REPORT INFORMATION
  Report Type: 
  Country: None (occurrence: None)
  Receive Date: 20100326
  Receipt Date: 20100326
  Transmission Date: 20100710
  Serious: Yes (Other)
  Sender: FDA-Public Use
  Company Number: None

PATIENT
  Age: 91 Year
  Sex: Female
  Weight: 65.7716 kg

DRUGS (1)
  1. FOSAMAX [Suspect]
     Indication: OSTEOPOROSIS
     Dates: start: 20100207

REACTIONS (9)
  - DIARRHOEA [None]
  - EAR PAIN [None]
  - FACIAL PAIN [None]
  - FAECES DISCOLOURED [None]
  - HEART RATE ABNORMAL [None]
  - MALAISE [None]
  - MASTICATION DISORDER [None]
  - NAUSEA [None]
  - PAIN IN JAW [None]
